FAERS Safety Report 4688806-5 (Version None)
Quarter: 2005Q2

REPORT INFORMATION
  Report Type: 
  Country: None (occurrence: None)
  Receive Date: 20050613
  Receipt Date: 20050531
  Transmission Date: 20051028
  Serious: Yes (Other)
  Sender: FDA-Public Use
  Company Number: CA-GLAXOSMITHKLINE-A0561478A

PATIENT
  Sex: Female

DRUGS (2)
  1. PAXIL [Suspect]
     Indication: DRUG USE FOR UNKNOWN INDICATION
     Dosage: 500MG SINGLE DOSE
     Route: 048
  2. SLEEP AID [Suspect]
     Dosage: 500MG SINGLE DOSE
     Route: 065

REACTIONS (2)
  - OVERDOSE [None]
  - SUICIDE ATTEMPT [None]
